FAERS Safety Report 12248478 (Version 1)
Quarter: 2016Q2

REPORT INFORMATION
  Report Type: Spontaneous
  Country: JP (occurrence: JP)
  Receive Date: 20160408
  Receipt Date: 20160408
  Transmission Date: 20160815
  Serious: Yes (Death, Other)
  Sender: FDA-Public Use
  Company Number: JP-ELI_LILLY_AND_COMPANY-JP201603003774

PATIENT
  Age: 59 Year
  Sex: Male
  Weight: 62 kg

DRUGS (3)
  1. CISPLATIN. [Concomitant]
     Active Substance: CISPLATIN
     Indication: HEAD AND NECK CANCER
     Dosage: UNK UNK, UNKNOWN
     Route: 065
     Dates: start: 20160113, end: 20160203
  2. ERBITUX [Suspect]
     Active Substance: CETUXIMAB
     Indication: HYPOPHARYNGEAL CANCER STAGE IV
     Dosage: 400 MG/M2, UNKNOWN
     Route: 042
     Dates: start: 20160113, end: 20160203
  3. FLUOROURACIL. [Concomitant]
     Active Substance: FLUOROURACIL
     Indication: HEAD AND NECK CANCER
     Dosage: UNK UNK, UNKNOWN
     Route: 065
     Dates: start: 20160113, end: 20160203

REACTIONS (3)
  - Interstitial lung disease [Recovering/Resolving]
  - Pneumonia bacterial [Unknown]
  - Multiple organ dysfunction syndrome [Fatal]

NARRATIVE: CASE EVENT DATE: 20160209
